FAERS Safety Report 21613405 (Version 5)
Quarter: 2023Q1

REPORT INFORMATION
  Report Type: Other
  Country: CA (occurrence: CA)
  Receive Date: 20221118
  Receipt Date: 20230123
  Transmission Date: 20230417
  Serious: Yes (Other)
  Sender: FDA-Public Use
  Company Number: CA-ROCHE-3220864

PATIENT
  Age: 57 Year
  Sex: Female

DRUGS (16)
  1. XOLAIR [Suspect]
     Active Substance: OMALIZUMAB
     Indication: Asthma
     Dosage: 375 MG, BIW
     Route: 058
     Dates: start: 20130718
  2. XOLAIR [Suspect]
     Active Substance: OMALIZUMAB
     Dosage: UNK
     Route: 058
     Dates: start: 20131118
  3. XOLAIR [Suspect]
     Active Substance: OMALIZUMAB
     Dosage: UNK
     Route: 058
     Dates: start: 20131216
  4. XOLAIR [Suspect]
     Active Substance: OMALIZUMAB
     Dosage: UNK
     Route: 058
     Dates: start: 20140127
  5. XOLAIR [Suspect]
     Active Substance: OMALIZUMAB
     Dosage: UNK
     Route: 058
     Dates: start: 20140425
  6. XOLAIR [Suspect]
     Active Substance: OMALIZUMAB
     Dosage: 375 MG, BIW
     Route: 058
  7. XOLAIR [Suspect]
     Active Substance: OMALIZUMAB
     Dosage: 375 MG, BIW
     Route: 058
  8. ADVAIR HFA [Concomitant]
     Active Substance: FLUTICASONE PROPIONATE\SALMETEROL XINAFOATE
  9. SINGULAIR [Concomitant]
     Active Substance: MONTELUKAST SODIUM
  10. QVAR [Concomitant]
     Active Substance: BECLOMETHASONE DIPROPIONATE
  11. ACTONEL [Concomitant]
     Active Substance: RISEDRONATE SODIUM
     Indication: Product used for unknown indication
     Dosage: UNK
  12. SPIRIVA [Concomitant]
     Active Substance: TIOTROPIUM BROMIDE MONOHYDRATE
  13. VENTOLIN [Concomitant]
     Active Substance: ALBUTEROL SULFATE
  14. FLUTICASONE FUROATE [Concomitant]
     Active Substance: FLUTICASONE FUROATE
  15. MONTELUKAST [Concomitant]
     Active Substance: MONTELUKAST SODIUM
     Indication: Product used for unknown indication
     Dosage: UNK
  16. VOLTAREN [Concomitant]
     Active Substance: DICLOFENAC SODIUM
     Indication: Product used for unknown indication

REACTIONS (33)
  - Cellulitis [Recovered/Resolved]
  - Folliculitis [Recovered/Resolved]
  - Secretion discharge [Recovering/Resolving]
  - Pneumonia [Unknown]
  - Fall [Unknown]
  - Heat oedema [Unknown]
  - Erythema nodosum [Unknown]
  - Dizziness postural [Unknown]
  - Wheezing [Recovered/Resolved]
  - Asthma [Unknown]
  - SARS-CoV-2 test positive [Recovering/Resolving]
  - Herpes zoster [Recovered/Resolved]
  - Sleep apnoea syndrome [Unknown]
  - Sputum discoloured [Recovered/Resolved]
  - Oropharyngeal pain [Recovering/Resolving]
  - Insomnia [Unknown]
  - Throat clearing [Unknown]
  - Bronchial disorder [Not Recovered/Not Resolved]
  - Pulmonary oedema [Unknown]
  - Phlebitis [Unknown]
  - Erythema [Unknown]
  - Back pain [Unknown]
  - Pain in extremity [Unknown]
  - Chest discomfort [Unknown]
  - Pneumonia [Recovered/Resolved]
  - General physical health deterioration [Unknown]
  - Fatigue [Unknown]
  - Dyspnoea [Unknown]
  - Illness [Recovered/Resolved]
  - Bronchitis [Not Recovered/Not Resolved]
  - Weight decreased [Unknown]
  - Sensitivity to weather change [Unknown]
  - Blood pressure increased [Unknown]

NARRATIVE: CASE EVENT DATE: 20131118
